FAERS Safety Report 14329832 (Version 3)
Quarter: 2018Q3

REPORT INFORMATION
  Report Type: Spontaneous
  Country: US (occurrence: US)
  Receive Date: 20171227
  Receipt Date: 20180917
  Transmission Date: 20181010
  Serious: No
  Sender: FDA-Public Use
  Company Number: US-TEVA-2017-US-830082

PATIENT
  Sex: Male

DRUGS (1)
  1. FENTANYL. [Suspect]
     Active Substance: FENTANYL
     Indication: PAIN

REACTIONS (7)
  - Hyperhidrosis [Unknown]
  - Drug ineffective [Unknown]
  - Skin exfoliation [Unknown]
  - Product adhesion issue [Unknown]
  - Blood testosterone decreased [Unknown]
  - Skin hypertrophy [Unknown]
  - Feeling drunk [Unknown]
